FAERS Safety Report 9004580 (Version 1)
Quarter: 2013Q1

REPORT INFORMATION
  Report Type: Spontaneous
  Country: US (occurrence: None)
  Receive Date: 20130103
  Receipt Date: 20130103
  Transmission Date: 20140127
  Serious: Yes (Other)
  Sender: FDA-Public Use
  Company Number: None

PATIENT
  Age: 35 Year
  Sex: Female
  Weight: 61.24 kg

DRUGS (2)
  1. XANAX [Suspect]
     Indication: ANXIETY
     Dosage: 25-50MCG 2-3 TIMES DAILY PO
     Route: 048
     Dates: start: 20110501, end: 20120831
  2. XANAX [Suspect]
     Indication: SLEEP DISORDER
     Dosage: 25-50MCG 2-3 TIMES DAILY PO
     Route: 048
     Dates: start: 20110501, end: 20120831

REACTIONS (5)
  - Hallucination [None]
  - Convulsion [None]
  - Violence-related symptom [None]
  - Loss of consciousness [None]
  - Respiratory rate decreased [None]
